FAERS Safety Report 4894932-8 (Version None)
Quarter: 2006Q1

REPORT INFORMATION
  Report Type: 
  Country: None (occurrence: None)
  Receive Date: 20060130
  Receipt Date: 20050329
  Transmission Date: 20060701
  Serious: No
  Sender: FDA-Public Use
  Company Number: US-BRISTOL-MYERS SQUIBB COMPANY-12913596

PATIENT
  Age: 69 Year
  Sex: Female
  Weight: 71 kg

DRUGS (2)
  1. GLUCOPHAGE [Suspect]
  2. TRACLEER [Suspect]
     Indication: PULMONARY HYPERTENSION
     Dosage: INITAL DOSE 62.5 MG BID, CHANGED TO AN UNSPECIFIED DOSE ON 25-OCT-2004
     Route: 048
     Dates: start: 20040713

REACTIONS (1)
  - BLOOD GLUCOSE INCREASED [None]
